FAERS Safety Report 23251372 (Version 1)
Quarter: 2023Q4

REPORT INFORMATION
  Report Type: Spontaneous
  Country: US (occurrence: None)
  Receive Date: 20231130
  Receipt Date: 20231130
  Transmission Date: 20240109
  Serious: Yes (Hospitalization)
  Sender: FDA-Public Use
  Company Number: None

PATIENT
  Sex: Female

DRUGS (11)
  1. METHYLPREDNISOLONE [Suspect]
     Active Substance: METHYLPREDNISOLONE
     Dosage: OTHER QUANTITY : 6T, DEC1 D TIL GON;?FREQUENCY : DAILY;?TAKE 6 TABLETS BY MOUTH ON DAY 1, THEN DECRE
     Route: 048
  2. METHYLPREDNISOLONE [Suspect]
     Active Substance: METHYLPREDNISOLONE
     Route: 048
  3. GABAPENTIN [Concomitant]
     Active Substance: GABAPENTIN
  4. KETOCONAZOLE CRE [Concomitant]
  5. DOVATO [Concomitant]
     Active Substance: DOLUTEGRAVIR SODIUM\LAMIVUDINE
  6. HYDROXYZINE PAMOATE [Concomitant]
     Active Substance: HYDROXYZINE PAMOATE
  7. AMOXICILLIN [Concomitant]
     Active Substance: AMOXICILLIN
  8. PANTOPRAZOLE [Concomitant]
     Active Substance: PANTOPRAZOLE
  9. SOD DR [Concomitant]
  10. CYCLOBENZAPRINE [Concomitant]
     Active Substance: CYCLOBENZAPRINE
  11. DULOXETINE [Concomitant]
     Active Substance: DULOXETINE

REACTIONS (3)
  - Gastritis [None]
  - Intestinal obstruction [None]
  - Staphylococcal infection [None]
